FAERS Safety Report 13466824 (Version 2)
Quarter: 2017Q2

REPORT INFORMATION
  Report Type: Spontaneous
  Country: None (occurrence: US)
  Receive Date: 20170421
  Receipt Date: 20170607
  Transmission Date: 20170830
  Serious: No
  Sender: FDA-Public Use
  Company Number: US-GLAXOSMITHKLINE-US2017057282

PATIENT
  Sex: Male

DRUGS (1)
  1. VENTOLIN HFA [Suspect]
     Active Substance: ALBUTEROL SULFATE
     Dosage: 2 PUFF(S), QD
     Route: 055

REACTIONS (6)
  - Product cleaning inadequate [Unknown]
  - Intentional device misuse [Unknown]
  - Wrong technique in device usage process [Unknown]
  - Product quality issue [Unknown]
  - Underdose [Unknown]
  - Drug ineffective [Unknown]
